FAERS Safety Report 4747612-3 (Version None)
Quarter: 2005Q3

REPORT INFORMATION
  Report Type: 
  Country: None (occurrence: None)
  Receive Date: 20050818
  Receipt Date: 20050105
  Transmission Date: 20060218
  Serious: No
  Sender: FDA-Public Use
  Company Number: US-BRISTOL-MYERS SQUIBB COMPANY-12815080

PATIENT
  Sex: Male

DRUGS (2)
  1. TEQUIN [Suspect]
     Route: 048
     Dates: start: 20050103, end: 20050104
  2. ACYCLOVIR [Concomitant]

REACTIONS (1)
  - PAIN IN EXTREMITY [None]
